FAERS Safety Report 12169923 (Version 2)
Quarter: 2022Q4

REPORT INFORMATION
  Report Type: Spontaneous
  Country: US (occurrence: US)
  Receive Date: 20160310
  Receipt Date: 20221123
  Transmission Date: 20230113
  Serious: No
  Sender: FDA-Public Use
  Company Number: PHEH2016US005763

PATIENT
  Age: 35 Year
  Sex: Female

DRUGS (1)
  1. EVEROLIMUS [Suspect]
     Active Substance: EVEROLIMUS
     Indication: Neurofibromatosis
     Dosage: 10 MG, QD
     Route: 048

REACTIONS (2)
  - Erythema nodosum [Recovering/Resolving]
  - Product use in unapproved indication [Unknown]
